FAERS Safety Report 24903312 (Version 1)
Quarter: 2025Q1

REPORT INFORMATION
  Report Type: Spontaneous
  Country: US (occurrence: US)
  Receive Date: 20250130
  Receipt Date: 20250130
  Transmission Date: 20250409
  Serious: Yes (Hospitalization)
  Sender: ROCHE
  Company Number: US-ROCHE-10000188694

PATIENT
  Age: 58 Year
  Sex: Female

DRUGS (1)
  1. ALECENSA [Suspect]
     Active Substance: ALECTINIB HYDROCHLORIDE
     Indication: Non-small cell lung cancer
     Route: 065
     Dates: start: 202310

REACTIONS (4)
  - Myalgia [Recovering/Resolving]
  - Pleural effusion [Recovering/Resolving]
  - Cardiac failure congestive [Recovering/Resolving]
  - Fatigue [Recovering/Resolving]
